FAERS Safety Report 5970527-X (Version None)
Quarter: 2008Q4

REPORT INFORMATION
  Report Type: 
  Country: None (occurrence: None)
  Receive Date: 20081126
  Receipt Date: 20081028
  Transmission Date: 20090506
  Serious: No
  Sender: FDA-Public Use
  Company Number: US-ABBOTT-08P-163-0484504-00

PATIENT
  Sex: Female

DRUGS (3)
  1. SIMCOR [Suspect]
     Indication: BLOOD CHOLESTEROL INCREASED
     Dates: start: 20081023
  2. UNKNOWN SLEEPING AID [Concomitant]
     Indication: INSOMNIA
  3. UNKNOWN [Concomitant]
     Indication: BACK PAIN
     Route: 050

REACTIONS (2)
  - FLUSHING [None]
  - PARAESTHESIA [None]
